FAERS Safety Report 8163535-4 (Version None)
Quarter: 2012Q1

REPORT INFORMATION
  Report Type: 
  Country: None (occurrence: None)
  Receive Date: 20120224
  Receipt Date: 20120217
  Transmission Date: 20120608
  Serious: Yes (Other)
  Sender: FDA-Public Use
  Company Number: GB-JNJFOC-20111205193

PATIENT
  Sex: Male

DRUGS (2)
  1. GOLIMUMAB [Suspect]
     Indication: PRODUCT USED FOR UNKNOWN INDICATION
     Route: 058
     Dates: end: 20111125
  2. GOLIMUMAB [Suspect]
     Route: 058

REACTIONS (2)
  - CELLULITIS [None]
  - PHLEBITIS [None]
